FAERS Safety Report 6325766-5 (Version None)
Quarter: 2009Q3

REPORT INFORMATION
  Report Type: 
  Country: None (occurrence: None)
  Receive Date: 20090818
  Receipt Date: 20090526
  Transmission Date: 20100115
  Serious: Yes (Hospitalization)
  Sender: FDA-Public Use
  Company Number: WAES 0905USA03877

PATIENT
  Age: 50 Year
  Sex: Male

DRUGS (4)
  1. JANUVIA [Suspect]
     Indication: DIABETES MELLITUS
     Dosage: 100 MG/DAILY/PO
     Route: 048
  2. HUMULIN R [Concomitant]
  3. LANTUS [Concomitant]
  4. METFORMIN HCL [Concomitant]

REACTIONS (1)
  - PANCREATITIS [None]
